FAERS Safety Report 7369877 (Version 4)
Quarter: 2013Q4

REPORT INFORMATION
  Report Type: Spontaneous
  Country: US (occurrence: US)
  Receive Date: 20100429
  Receipt Date: 20131125
  Transmission Date: 20140711
  Serious: Yes (Hospitalization)
  Sender: FDA-Public Use
  Company Number: US-BAYER-201020466NA

PATIENT
  Age: 19 Year
  Sex: Female
  Weight: 64 kg

DRUGS (2)
  1. YAZ [Suspect]
     Indication: ORAL CONTRACEPTION
     Dosage: AS USED DOSE:UNK
     Route: 048
     Dates: start: 200802, end: 200809
  2. SYNTHROID [Concomitant]

REACTIONS (5)
  - Cholecystitis chronic [None]
  - Cholelithiasis [None]
  - Bile duct obstruction [None]
  - Abdominal pain upper [None]
  - Vomiting [None]
